FAERS Safety Report 10783484 (Version 3)
Quarter: 2015Q2

REPORT INFORMATION
  Report Type: Report from Study
  Country: JP (occurrence: JP)
  Receive Date: 20150210
  Receipt Date: 20150429
  Transmission Date: 20150821
  Serious: Yes (Other)
  Sender: FDA-Public Use
  Company Number: JP-TEVA-539790USA

PATIENT
  Age: 28 Year
  Sex: Female

DRUGS (7)
  1. METALCAPTASE [Concomitant]
     Active Substance: PENICILLAMINE
     Route: 048
     Dates: start: 20101019
  2. METALCAPTASE [Concomitant]
     Active Substance: PENICILLAMINE
     Route: 048
     Dates: start: 20101019
  3. METALCAPTASE [Concomitant]
     Active Substance: PENICILLAMINE
     Route: 048
  4. GALZIN [Suspect]
     Active Substance: ZINC ACETATE
     Indication: HEPATO-LENTICULAR DEGENERATION
     Dosage: 450 MILLIGRAM DAILY;
     Route: 048
     Dates: start: 20100119, end: 20110418
  5. METALCAPTASE [Concomitant]
     Active Substance: PENICILLAMINE
     Indication: HEPATO-LENTICULAR DEGENERATION
     Route: 048
     Dates: start: 20100119, end: 20101018
  6. GALZIN [Suspect]
     Active Substance: ZINC ACETATE
     Dosage: 200 MILLIGRAM DAILY;
     Route: 048
     Dates: start: 20110419, end: 20130118
  7. GALZIN [Suspect]
     Active Substance: ZINC ACETATE
     Route: 048

REACTIONS (1)
  - Colitis ulcerative [Recovering/Resolving]

NARRATIVE: CASE EVENT DATE: 20140422
